FAERS Safety Report 22371741 (Version 1)
Quarter: 2023Q2

REPORT INFORMATION
  Report Type: Spontaneous
  Country: NO (occurrence: NO)
  Receive Date: 20230526
  Receipt Date: 20230526
  Transmission Date: 20230721
  Serious: Yes (Hospitalization, Disabling)
  Sender: FDA-Public Use
  Company Number: None

PATIENT
  Age: 30 Year
  Sex: Female

DRUGS (2)
  1. AJOVY [Suspect]
     Active Substance: FREMANEZUMAB-VFRM
     Indication: Migraine
     Route: 065
     Dates: start: 20210914, end: 202203
  2. BOTOX [Concomitant]
     Active Substance: ONABOTULINUMTOXINA
     Indication: Migraine
     Dosage: BOTOX 200E. ONCE EVERY THIRD MONTH,  OPL 200 E
     Dates: start: 2020, end: 202203

REACTIONS (13)
  - Muscle spasms [Recovering/Resolving]
  - Nausea [Unknown]
  - Constipation [Unknown]
  - Defaecation urgency [Unknown]
  - Malaise [Unknown]
  - Swelling [Unknown]
  - Tremor [Unknown]
  - Retching [Unknown]
  - Heart rate increased [Unknown]
  - Weight increased [Unknown]
  - Fatigue [Unknown]
  - Diarrhoea [Unknown]
  - Rash [Unknown]

NARRATIVE: CASE EVENT DATE: 20220101
